FAERS Safety Report 18039183 (Version 2)
Quarter: 2020Q3

REPORT INFORMATION
  Report Type: Report from Study
  Country: None (occurrence: AU)
  Receive Date: 20200718
  Receipt Date: 20200826
  Transmission Date: 20201103
  Serious: Yes (Other)
  Sender: FDA-Public Use
  Company Number: AU-ABBVIE-20K-008-3475196-00

PATIENT
  Age: 80 Year
  Sex: Male
  Weight: 80 kg

DRUGS (6)
  1. MADOPAR HBS [Concomitant]
     Active Substance: BENSERAZIDE HYDROCHLORIDE\LEVODOPA
     Indication: PARKINSON^S DISEASE
     Dosage: 100/25 UNITS NOT REPORTED?NOCTE
     Route: 048
  2. DUODOPA [Suspect]
     Active Substance: CARBIDOPA\LEVODOPA
     Dosage: 7830 MG TOTAL DOPA DAILY DOSE
     Route: 050
     Dates: start: 20190102
  3. SEROQUEL [Concomitant]
     Active Substance: QUETIAPINE FUMARATE
     Indication: HALLUCINATION
     Dosage: 25 UNIT NOT REPORTED?NOCTE
     Route: 048
  4. DUODOPA [Suspect]
     Active Substance: CARBIDOPA\LEVODOPA
     Indication: PARKINSON^S DISEASE
     Dosage: 16 HOUR THERAPY
     Route: 050
     Dates: start: 20180308
  5. SIFROL [Concomitant]
     Active Substance: PRAMIPEXOLE
     Indication: PARKINSON^S DISEASE
     Dosage: 1.5 UNITS NOT REPORTED?NOCTE
     Route: 048
  6. AMANTADINE. [Concomitant]
     Active Substance: AMANTADINE HYDROCHLORIDE
     Indication: PARKINSON^S DISEASE
     Dosage: 100 UNITS NOT REPORTED
     Route: 048

REACTIONS (8)
  - Stoma site discharge [Unknown]
  - Embedded device [Recovered/Resolved]
  - Device issue [Unknown]
  - Stoma site inflammation [Unknown]
  - Catheter site swelling [Unknown]
  - Skin abrasion [Unknown]
  - Bacterial infection [Recovered/Resolved]
  - Stoma site erythema [Unknown]

NARRATIVE: CASE EVENT DATE: 20200706
